FAERS Safety Report 8454650-6 (Version None)
Quarter: 2012Q2

REPORT INFORMATION
  Report Type: 
  Country: None (occurrence: None)
  Receive Date: 20120621
  Receipt Date: 20120613
  Transmission Date: 20120825
  Serious: Yes (Other)
  Sender: FDA-Public Use
  Company Number: US-BRISTOL-MYERS SQUIBB COMPANY-16682536

PATIENT
  Age: 83 Year
  Sex: Female

DRUGS (3)
  1. ABILIFY [Suspect]
     Indication: HALLUCINATION
     Dosage: EVERY EVENING
     Dates: start: 20120101
  2. GLUCOPHAGE [Concomitant]
  3. ZOLOFT [Concomitant]

REACTIONS (2)
  - DELUSION [None]
  - MUSCULOSKELETAL STIFFNESS [None]
